FAERS Safety Report 5376133-2 (Version None)
Quarter: 2007Q3

REPORT INFORMATION
  Report Type: 
  Country: None (occurrence: None)
  Receive Date: 20070702
  Receipt Date: 20070628
  Transmission Date: 20080115
  Serious: Yes (Other)
  Sender: FDA-Public Use
  Company Number: B0477428A

PATIENT
  Sex: Male

DRUGS (3)
  1. AVODART [Suspect]
     Indication: DRUG USE FOR UNKNOWN INDICATION
     Route: 065
  2. LEVOFLOXACIN [Concomitant]
  3. OMNIC [Concomitant]

REACTIONS (2)
  - ABDOMINAL PAIN [None]
  - TRANSAMINASES INCREASED [None]
